FAERS Safety Report 12844469 (Version 1)
Quarter: 2016Q4

REPORT INFORMATION
  Report Type: Spontaneous
  Country: US (occurrence: US)
  Receive Date: 20161012
  Receipt Date: 20161012
  Transmission Date: 20170207
  Serious: Yes (Other)
  Sender: FDA-Public Use
  Company Number: None

PATIENT
  Age: 49 Year
  Sex: Female
  Weight: 58.5 kg

DRUGS (2)
  1. MVI [Concomitant]
     Active Substance: VITAMINS
  2. PROAIR HFA [Suspect]
     Active Substance: ALBUTEROL SULFATE
     Indication: ASTHMA
     Dosage: 90 IU INTERNATIONAL UNIT?          QUANTITY:2 PUFF(S);?
     Route: 055
     Dates: start: 20161010

REACTIONS (2)
  - Drug ineffective [None]
  - Laryngitis [None]

NARRATIVE: CASE EVENT DATE: 20161010
